FAERS Safety Report 4381906-9 (Version None)
Quarter: 2004Q2

REPORT INFORMATION
  Report Type: 
  Country: None (occurrence: None)
  Receive Date: 20040615
  Receipt Date: 20040608
  Transmission Date: 20050107
  Serious: Yes (Death, Hospitalization)
  Sender: FDA-Public Use
  Company Number: 200410335BNE

PATIENT
  Age: 84 Year
  Sex: Male

DRUGS (3)
  1. ASPIRIN [Suspect]
     Dosage: 75 MG, TOTAL DAILY, ORAL
     Route: 048
     Dates: end: 20040430
  2. DIPYRIDAMOLE [Suspect]
     Dosage: 200 MG, BID, ORAL
     Route: 048
     Dates: end: 20040430
  3. CLOMETHIAZOLE [Concomitant]

REACTIONS (1)
  - HAEMATEMESIS [None]
